FAERS Safety Report 20318937 (Version 1)
Quarter: 2022Q1

REPORT INFORMATION
  Report Type: Report from Study
  Country: US (occurrence: US)
  Receive Date: 20220110
  Receipt Date: 20220110
  Transmission Date: 20220423
  Serious: Yes (Hospitalization)
  Sender: FDA-Public Use
  Company Number: US-MEDIVATION-20160501606

PATIENT
  Age: 73 Year
  Sex: Male
  Weight: 65.1 kg

DRUGS (2)
  1. TALAZOPARIB [Suspect]
     Active Substance: TALAZOPARIB
     Indication: Pancreatic carcinoma
     Dosage: 1000.00 UG, 1X/DAY
     Route: 048
     Dates: start: 20160204, end: 20160217
  2. ASPIRIN [Concomitant]
     Active Substance: ASPIRIN
     Dosage: UNK

REACTIONS (4)
  - Hypokalaemia [Unknown]
  - Platelet count decreased [Unknown]
  - Hypocalcaemia [Unknown]
  - Anaemia [Unknown]

NARRATIVE: CASE EVENT DATE: 20160224
